FAERS Safety Report 19374970 (Version 1)
Quarter: 2021Q2

REPORT INFORMATION
  Report Type: Report from Study
  Country: ES (occurrence: ES)
  Receive Date: 20210604
  Receipt Date: 20210604
  Transmission Date: 20210717
  Serious: Yes (Other)
  Sender: FDA-Public Use
  Company Number: ES-TEVA-2021-ES-1918296

PATIENT
  Age: 55 Year
  Sex: Male

DRUGS (1)
  1. ATORVASTATINA (7400A) [Suspect]
     Active Substance: ATORVASTATIN
     Route: 065
     Dates: start: 20181209

REACTIONS (1)
  - Atrial fibrillation [Recovered/Resolved]

NARRATIVE: CASE EVENT DATE: 20190101
